FAERS Safety Report 18354583 (Version 1)
Quarter: 2020Q4

REPORT INFORMATION
  Report Type: Spontaneous
  Country: US (occurrence: US)
  Receive Date: 20201007
  Receipt Date: 20201007
  Transmission Date: 20210114
  Serious: No
  Sender: FDA-Public Use
  Company Number: US-BION-008218

PATIENT
  Sex: Female

DRUGS (1)
  1. PROGESTERONE CAPSULES 200 MG [Suspect]
     Active Substance: PROGESTERONE
     Indication: PRODUCT USED FOR UNKNOWN INDICATION
     Dosage: STRENGTH: 200 MG?SHE TOOK THE DRUG FOR 1 WEEK

REACTIONS (2)
  - Product odour abnormal [Unknown]
  - Poor quality product administered [Not Recovered/Not Resolved]
